FAERS Safety Report 14482014 (Version 1)
Quarter: 2018Q1

REPORT INFORMATION
  Report Type: Spontaneous
  Country: US (occurrence: US)
  Receive Date: 20180202
  Receipt Date: 20180202
  Transmission Date: 20180509
  Serious: Yes (Hospitalization, Other)
  Sender: FDA-Public Use
  Company Number: US-LEXICON PHARMACEUTICALS, INC-18-1606-00096

PATIENT
  Sex: Female
  Weight: 70.3 kg

DRUGS (12)
  1. QUESTRAN [Concomitant]
     Active Substance: CHOLESTYRAMINE
     Dosage: PACKET
  2. CREON [Concomitant]
     Active Substance: PANCRELIPASE AMYLASE\PANCRELIPASE LIPASE\PANCRELIPASE PROTEASE
  3. TELOTRISTAT ETHYL [Suspect]
     Active Substance: TELOTRISTAT ETHYL
     Indication: CARCINOID SYNDROME
     Route: 048
     Dates: start: 20171013, end: 201801
  4. TYLENOL [Concomitant]
     Active Substance: ACETAMINOPHEN
  5. VITAMIN D2 [Concomitant]
     Active Substance: ERGOCALCIFEROL
  6. LIPITOR [Concomitant]
     Active Substance: ATORVASTATIN CALCIUM
  7. OCTREOTIDE. [Concomitant]
     Active Substance: OCTREOTIDE
  8. CULTURELLE [Concomitant]
     Active Substance: LACTOBACILLUS RHAMNOSUS
  9. LANREOTIDE [Suspect]
     Active Substance: LANREOTIDE
     Dates: end: 201801
  10. XANAX [Concomitant]
     Active Substance: ALPRAZOLAM
  11. ZANTAC [Concomitant]
     Active Substance: RANITIDINE HYDROCHLORIDE
  12. VITAMIN B-3 [Concomitant]

REACTIONS (12)
  - Lipids abnormal [Unknown]
  - Eczema [Unknown]
  - Oedema [Not Recovered/Not Resolved]
  - Haemorrhoids [Unknown]
  - Proteinuria [Not Recovered/Not Resolved]
  - Vitamin D deficiency [Unknown]
  - Diverticulum intestinal [Unknown]
  - Hypovolaemia [Unknown]
  - Vitamin B12 deficiency [Unknown]
  - Orthostatic hypotension [Unknown]
  - Nephrotic syndrome [Recovering/Resolving]
  - Generalised oedema [Unknown]

NARRATIVE: CASE EVENT DATE: 2017
